FAERS Safety Report 8118187-6 (Version None)
Quarter: 2012Q1

REPORT INFORMATION
  Report Type: 
  Country: None (occurrence: None)
  Receive Date: 20120207
  Receipt Date: 20120125
  Transmission Date: 20120608
  Serious: Yes (Hospitalization)
  Sender: FDA-Public Use
  Company Number: US-VIROPHARMA INCORPORATED-20120109CINRY2553

PATIENT
  Sex: Female
  Weight: 69.008 kg

DRUGS (11)
  1. ONDANSETRON HCL [Concomitant]
     Indication: PRODUCT USED FOR UNKNOWN INDICATION
     Dosage: UNKNOWN
     Route: 065
  2. CINRYZE [Suspect]
     Indication: HEREDITARY ANGIOEDEMA
     Dates: start: 20090122
  3. OMEPRAZOLE [Concomitant]
     Indication: PRODUCT USED FOR UNKNOWN INDICATION
     Dosage: UNKNOWN
     Route: 065
  4. PERCOCET [Concomitant]
     Indication: PAIN
     Route: 065
  5. ALVESCO [Concomitant]
     Indication: ASTHMA
     Dosage: 2 PUFFS
  6. XOPENEX [Concomitant]
     Indication: ASTHMA
     Dosage: UNKNOWN
     Route: 065
  7. FLUOXETINE HCL [Concomitant]
     Indication: DEPRESSION
     Route: 065
  8. AMBIEN [Concomitant]
     Indication: PRODUCT USED FOR UNKNOWN INDICATION
     Dosage: UNKNOWN
     Route: 065
  9. FIRAZYR [Concomitant]
     Indication: HEREDITARY ANGIOEDEMA
     Dosage: UNKNOWN
     Dates: start: 20110101
  10. COUMADIN [Concomitant]
     Indication: ANTICOAGULANT THERAPY
     Dosage: UNKNOWN
     Route: 065
  11. CLONAZEPAM [Concomitant]
     Indication: ANXIETY
     Dosage: UNKNOWN

REACTIONS (7)
  - DIARRHOEA [None]
  - GASTROOESOPHAGEAL REFLUX DISEASE [None]
  - ASTHMA [None]
  - DEVICE RELATED INFECTION [None]
  - INAPPROPRIATE SCHEDULE OF DRUG ADMINISTRATION [None]
  - ENDOCARDITIS STAPHYLOCOCCAL [None]
  - HEREDITARY ANGIOEDEMA [None]
